FAERS Safety Report 7635618-6 (Version None)
Quarter: 2011Q3

REPORT INFORMATION
  Report Type: 
  Country: None (occurrence: None)
  Receive Date: 20110726
  Receipt Date: 20110714
  Transmission Date: 20111222
  Serious: No
  Sender: FDA-Public Use
  Company Number: PHHY2011US63591

PATIENT
  Sex: Female
  Weight: 110.2 kg

DRUGS (1)
  1. TASIGNA [Suspect]
     Indication: CHRONIC MYELOID LEUKAEMIA
     Dosage: 200 MG, TID
     Route: 048
     Dates: start: 20091210

REACTIONS (3)
  - DYSPNOEA [None]
  - RASH [None]
  - FATIGUE [None]
